FAERS Safety Report 19295662 (Version 5)
Quarter: 2021Q2

REPORT INFORMATION
  Report Type: Spontaneous
  Country: CN (occurrence: CN)
  Receive Date: 20210524
  Receipt Date: 20210611
  Transmission Date: 20210717
  Serious: No
  Sender: FDA-Public Use
  Company Number: CN-JNJFOC-20210527269

PATIENT
  Age: 53 Year
  Sex: Female
  Weight: 58 kg

DRUGS (12)
  1. DUROGESIC D?TRANS [Suspect]
     Active Substance: FENTANYL
  2. DUROGESIC D?TRANS [Suspect]
     Active Substance: FENTANYL
  3. DUROGESIC D?TRANS [Suspect]
     Active Substance: FENTANYL
  4. DUROGESIC D?TRANS [Suspect]
     Active Substance: FENTANYL
  5. DUROGESIC D?TRANS [Suspect]
     Active Substance: FENTANYL
  6. DUROGESIC D?TRANS [Suspect]
     Active Substance: FENTANYL
  7. DUROGESIC D?TRANS [Suspect]
     Active Substance: FENTANYL
     Indication: PAIN
     Dosage: 25.00 MCG/HR?THE VENDOR LOT# WAS KAB5E00, VALID. THE REPACK LOT# WAS KAB5E00E, VALID
     Route: 062
     Dates: start: 20210210
  8. DUROGESIC D?TRANS [Suspect]
     Active Substance: FENTANYL
  9. DUROGESIC D?TRANS [Suspect]
     Active Substance: FENTANYL
  10. DUROGESIC D?TRANS [Suspect]
     Active Substance: FENTANYL
  11. DUROGESIC D?TRANS [Suspect]
     Active Substance: FENTANYL
  12. DUROGESIC D?TRANS [Suspect]
     Active Substance: FENTANYL
     Indication: PAIN
     Dosage: STRENGTH: 25.00 MCG/HR
     Route: 062
     Dates: start: 20210210

REACTIONS (7)
  - Product quality issue [Unknown]
  - Therapeutic product effect decreased [Unknown]
  - Underdose [Unknown]
  - Inappropriate schedule of product administration [Unknown]
  - Product label issue [Unknown]
  - Product adhesion issue [Unknown]
  - Product physical issue [Unknown]

NARRATIVE: CASE EVENT DATE: 2021
